FAERS Safety Report 7860997-4 (Version None)
Quarter: 2011Q4

REPORT INFORMATION
  Report Type: 
  Country: None (occurrence: None)
  Receive Date: 20111027
  Receipt Date: 20111021
  Transmission Date: 20120403
  Serious: Yes (Other)
  Sender: FDA-Public Use
  Company Number: US-GLAXOSMITHKLINE-A0950475A

PATIENT
  Age: 63 Year
  Sex: Female

DRUGS (3)
  1. REVATIO [Concomitant]
  2. FLOLAN [Suspect]
     Indication: PULMONARY HYPERTENSION
     Dosage: 15NGKM UNKNOWN
     Route: 042
     Dates: start: 20100528
  3. LETAIRIS [Concomitant]

REACTIONS (4)
  - MEMORY IMPAIRMENT [None]
  - MELAENA [None]
  - DECREASED APPETITE [None]
  - DIARRHOEA [None]
